FAERS Safety Report 24877666 (Version 1)
Quarter: 2025Q1

REPORT INFORMATION
  Report Type: Spontaneous
  Country: US (occurrence: US)
  Receive Date: 20250123
  Receipt Date: 20250123
  Transmission Date: 20250409
  Serious: Yes (Other)
  Sender: ROCHE
  Company Number: US-CHEPLA-2025000770

PATIENT
  Age: 63 Year
  Sex: Female

DRUGS (9)
  1. CAPECITABINE [Suspect]
     Active Substance: CAPECITABINE
     Indication: Thymoma
     Route: 065
  2. CAPECITABINE [Suspect]
     Active Substance: CAPECITABINE
     Indication: Disease progression
  3. ATEZOLIZUMAB [Suspect]
     Active Substance: ATEZOLIZUMAB
     Indication: Thymoma
     Route: 065
     Dates: start: 2022
  4. GEMCITABINE [Suspect]
     Active Substance: GEMCITABINE
     Indication: Disease progression
     Route: 065
  5. GEMCITABINE [Suspect]
     Active Substance: GEMCITABINE
     Indication: Thymoma
  6. DOXORUBICIN [Concomitant]
     Active Substance: DOXORUBICIN
     Indication: Thymoma
     Route: 065
  7. CYCLOSPORINE [Concomitant]
     Active Substance: CYCLOSPORINE
     Indication: Thymoma
     Route: 065
     Dates: end: 202205
  8. CISPLATIN [Concomitant]
     Active Substance: CISPLATIN
     Indication: Aplastic anaemia
     Route: 065
  9. CYCLOPHOSPHAMIDE [Concomitant]
     Active Substance: CYCLOPHOSPHAMIDE
     Route: 065

REACTIONS (4)
  - Immune-mediated dermatitis [Unknown]
  - Off label use [Unknown]
  - Anaemia [Unknown]
  - Thrombocytopenia [Unknown]
